FAERS Safety Report 4649762-9 (Version None)
Quarter: 2005Q2

REPORT INFORMATION
  Report Type: 
  Country: None (occurrence: None)
  Receive Date: 20050428
  Receipt Date: 20050415
  Transmission Date: 20051028
  Serious: Yes (Hospitalization)
  Sender: FDA-Public Use
  Company Number: SUS1-2005-00272

PATIENT
  Age: 35 Year
  Sex: Male

DRUGS (1)
  1. PENTASA [Suspect]
     Indication: COLITIS ULCERATIVE
     Dosage: 1500 MG DAILY, ORAL
     Route: 048
     Dates: start: 20050303, end: 20050317

REACTIONS (2)
  - COMPUTERISED TOMOGRAM ABNORMAL [None]
  - PNEUMONIA [None]
